FAERS Safety Report 18724569 (Version 1)
Quarter: 2021Q1

REPORT INFORMATION
  Report Type: Spontaneous
  Country: US (occurrence: US)
  Receive Date: 20210111
  Receipt Date: 20210111
  Transmission Date: 20210419
  Serious: Yes (Hospitalization)
  Sender: FDA-Public Use
  Company Number: None

PATIENT
  Age: 74 Year
  Sex: Female
  Weight: 58.1 kg

DRUGS (10)
  1. BAMLANIVIMAB. [Suspect]
     Active Substance: BAMLANIVIMAB
     Indication: COVID-19
     Route: 042
     Dates: start: 20210104, end: 20210104
  2. LISINOPRIL. [Concomitant]
     Active Substance: LISINOPRIL
  3. MIRTAZAPINE. [Concomitant]
     Active Substance: MIRTAZAPINE
  4. ASPIRIN. [Concomitant]
     Active Substance: ASPIRIN
  5. MESALAMINE. [Concomitant]
     Active Substance: MESALAMINE
  6. NORVASC [Concomitant]
     Active Substance: AMLODIPINE BESYLATE
  7. FAMOTIDINE. [Concomitant]
     Active Substance: FAMOTIDINE
  8. COPAXONE [Concomitant]
     Active Substance: GLATIRAMER ACETATE
  9. SIMVASTATIN. [Concomitant]
     Active Substance: SIMVASTATIN
  10. METROPROLOL SUCCINATE XL [Concomitant]

REACTIONS (5)
  - Haemorrhage intracranial [None]
  - Cerebrovascular accident [None]
  - Cerebrospinal fluid retention [None]
  - Lacunar infarction [None]
  - Confusional state [None]

NARRATIVE: CASE EVENT DATE: 20210104
